FAERS Safety Report 7999251-9 (Version None)
Quarter: 2011Q4

REPORT INFORMATION
  Report Type: 
  Country: None (occurrence: None)
  Receive Date: 20111221
  Receipt Date: 20111207
  Transmission Date: 20120403
  Serious: Yes (Death, Other)
  Sender: FDA-Public Use
  Company Number: IT-ROCHE-1020810

PATIENT

DRUGS (4)
  1. FLUDARABINE PHOSPHATE [Suspect]
     Indication: B-CELL LYMPHOMA
  2. MABTHERA [Suspect]
     Indication: B-CELL LYMPHOMA
  3. DEXAMETHASONE [Suspect]
     Indication: B-CELL LYMPHOMA
  4. MITOXANTRONE HYDROCHLORIDE [Suspect]
     Indication: B-CELL LYMPHOMA

REACTIONS (6)
  - INFECTION [None]
  - STEVENS-JOHNSON SYNDROME [None]
  - HEPATITIS B [None]
  - CARDIAC DISORDER [None]
  - NEUTROPENIA [None]
  - NEOPLASM MALIGNANT [None]
